FAERS Safety Report 8494462 (Version 4)
Quarter: 2012Q4

REPORT INFORMATION
  Report Type: 
  Country: JP (occurrence: JP)
  Receive Date: 20120404
  Receipt Date: 20121019
  Transmission Date: 20130627
  Serious: Yes (Hospitalization, Other)
  Sender: FDA-Public Use
  Company Number: JP-GILEAD-2012-0051456

PATIENT
  Age: 47 None
  Sex: Male

DRUGS (17)
  1. HEPSERA [Suspect]
     Indication: HEPATITIS B
     Dosage: UNK
     Route: 048
     Dates: end: 20120106
  2. HEPSERA [Suspect]
     Route: 048
     Dates: end: 20120106
  3. HEPSERA [Suspect]
     Route: 048
     Dates: start: 201002, end: 20120106
  4. BARACLUDE                          /03597801/ [Concomitant]
     Indication: HEPATITIS B
     Dosage: UNK
     Dates: start: 20120106
  5. MYSLEE [Concomitant]
     Indication: PRODUCT USED FOR UNKNOWN INDICATION
     Route: 048
  6. MYSLEE [Concomitant]
     Dosage: 5MG At night
     Route: 048
  7. MYSLEE [Concomitant]
     Dosage: 5MG At night
     Route: 048
  8. MYSLEE [Concomitant]
     Route: 048
  9. SOLANAX [Concomitant]
     Indication: PRODUCT USED FOR UNKNOWN INDICATION
     Route: 048
  10. SOLANAX [Concomitant]
     Route: 048
  11. SOLANAX [Concomitant]
     Route: 048
  12. SOLANAX [Concomitant]
     Route: 048
  13. MUCOSTA [Concomitant]
     Dosage: 1001MG Per day
     Route: 048
     Dates: start: 20120526
  14. MAGNESIUM OXIDE [Concomitant]
     Dosage: 330MG Three times per day
     Route: 048
     Dates: start: 20120526
  15. WARFARIN [Concomitant]
     Dosage: 2MG Per day
     Route: 048
     Dates: start: 20120526
  16. BARACLUDE [Concomitant]
     Route: 048
  17. JUSO [Concomitant]
     Route: 048

REACTIONS (7)
  - Tubulointerstitial nephritis [Not Recovered/Not Resolved]
  - Fanconi syndrome acquired [Not Recovered/Not Resolved]
  - Blood alkaline phosphatase increased [Unknown]
  - Renal disorder [Unknown]
  - Blood potassium decreased [Recovering/Resolving]
  - Blood creatinine increased [Recovering/Resolving]
  - Blood phosphorus decreased [Recovering/Resolving]
